FAERS Safety Report 7598125-5 (Version None)
Quarter: 2011Q3

REPORT INFORMATION
  Report Type: 
  Country: None (occurrence: None)
  Receive Date: 20110708
  Receipt Date: 20110630
  Transmission Date: 20111222
  Serious: Yes (Hospitalization)
  Sender: FDA-Public Use
  Company Number: CA-US-EMD SERONO, INC.-7060774

PATIENT
  Sex: Female

DRUGS (10)
  1. PLEXARIL [Concomitant]
  2. PAXIL [Concomitant]
     Indication: ANXIETY
  3. HYDROMORPHONE HCL [Concomitant]
     Indication: PAIN
  4. BIZACODIL-ODUM [Concomitant]
  5. MORPHINE [Concomitant]
     Indication: PAIN
  6. REBIF [Suspect]
     Indication: RELAPSING-REMITTING MULTIPLE SCLEROSIS
     Route: 058
     Dates: start: 20050317
  7. EURO-DOCOSATE-C [Concomitant]
  8. ANTIDEPRESSANTS [Concomitant]
     Dates: end: 20110401
  9. HYDROCHLOROTHIAZIDE [Concomitant]
  10. VALIUM [Concomitant]

REACTIONS (3)
  - WEIGHT INCREASED [None]
  - ARRHYTHMIA [None]
  - ANXIETY [None]
